FAERS Safety Report 9972160 (Version 1)
Quarter: 2014Q1

REPORT INFORMATION
  Report Type: Spontaneous
  Country: IT (occurrence: None)
  Receive Date: 20140304
  Receipt Date: 20140304
  Transmission Date: 20141002
  Serious: Yes (Other)
  Sender: FDA-Public Use
  Company Number: FK201400676

PATIENT
  Age: 58 Year
  Sex: Female
  Weight: 83 kg

DRUGS (4)
  1. PACLITAXEL (MANUFACTURER UNKNOWN) (PACLITAXEL) (PACLITAXEL) [Suspect]
     Indication: BREAST CANCER
     Route: 042
     Dates: start: 20120913, end: 20121207
  2. HERCEPTIN (TRASTUZUMAB) (TRASTUZUMAB) [Suspect]
     Indication: BREAST CANCER
     Route: 042
     Dates: start: 20120913, end: 20130816
  3. EUTIROX (LEVOTHYROXINE SODIUM) [Concomitant]
  4. LETROZOLE (LETROZOLE) [Concomitant]

REACTIONS (3)
  - Arthritis [None]
  - Interstitial lung disease [None]
  - Pyrexia [None]
